FAERS Safety Report 9896086 (Version 1)
Quarter: 2014Q1

REPORT INFORMATION
  Report Type: Spontaneous
  Country: US (occurrence: US)
  Receive Date: 20140213
  Receipt Date: 20140213
  Transmission Date: 20141002
  Serious: No
  Sender: FDA-Public Use
  Company Number: US-BRISTOL-MYERS SQUIBB COMPANY-19051424

PATIENT
  Age: 23 Year
  Sex: Female
  Weight: 58.96 kg

DRUGS (3)
  1. ABATACEPT SUBQ INJECTION 125MG/ML [Suspect]
     Dosage: LAST DOSE: MAY2013
     Route: 058
     Dates: start: 2011
  2. PREDNISONE [Concomitant]
     Dosage: TABLETS
  3. MULTIVITAMIN [Concomitant]
     Dosage: CAPSULE

REACTIONS (1)
  - Drug ineffective [Unknown]
